FAERS Safety Report 9254318 (Version 1)
Quarter: 2013Q2

REPORT INFORMATION
  Report Type: Report from Study
  Country: NL (occurrence: NL)
  Receive Date: 20130425
  Receipt Date: 20130425
  Transmission Date: 20140414
  Serious: Yes (Death)
  Sender: FDA-Public Use
  Company Number: PHHY2013NL040549

PATIENT
  Sex: Female

DRUGS (3)
  1. ACLASTA [Suspect]
     Indication: OSTEOPOROSIS
     Dosage: 5 MG ONCE IN 364 DAY
     Route: 042
     Dates: start: 20100325
  2. ACLASTA [Suspect]
     Dosage: 5 MG ONCE IN 364 DAY
     Route: 042
     Dates: start: 20110331
  3. ACLASTA [Suspect]
     Dosage: 5 MG ONCE IN 364 DAY
     Route: 042
     Dates: start: 20120508

REACTIONS (2)
  - Decreased interest [Fatal]
  - Dementia [Fatal]
